FAERS Safety Report 7238081-2 (Version None)
Quarter: 2011Q1

REPORT INFORMATION
  Report Type: 
  Country: None (occurrence: None)
  Receive Date: 20110121
  Receipt Date: 20110118
  Transmission Date: 20110831
  Serious: Yes (Hospitalization)
  Sender: FDA-Public Use
  Company Number: B0694138A

PATIENT
  Sex: Male

DRUGS (6)
  1. URBANYL [Concomitant]
     Route: 065
  2. DEROXAT [Suspect]
     Dosage: 10MG PER DAY
     Route: 048
     Dates: start: 20100301, end: 20101001
  3. COZAAR [Concomitant]
     Route: 065
  4. ZOPICLONE [Concomitant]
     Route: 065
  5. KARDEGIC [Concomitant]
     Route: 065
  6. DIAMICRON [Concomitant]
     Route: 065

REACTIONS (7)
  - DYSPHEMIA [None]
  - ECHOLALIA [None]
  - FRONTOTEMPORAL DEMENTIA [None]
  - DYSKINESIA [None]
  - CRYING [None]
  - STEREOTYPY [None]
  - ATAXIA [None]
